FAERS Safety Report 10071226 (Version 1)
Quarter: 2014Q2

REPORT INFORMATION
  Report Type: Spontaneous
  Country: BR (occurrence: BR)
  Receive Date: 20140410
  Receipt Date: 20140410
  Transmission Date: 20141212
  Serious: Yes (Hospitalization, Other)
  Sender: FDA-Public Use
  Company Number: PHHY2014BR042359

PATIENT
  Age: 68 Year
  Sex: Male

DRUGS (1)
  1. ZOMETA [Suspect]
     Indication: METASTASES TO BONE
     Dosage: 4 MG, MONTHLY
     Route: 042

REACTIONS (6)
  - Osteonecrosis of jaw [Recovering/Resolving]
  - Breath odour [Recovered/Resolved]
  - Pain [Recovered/Resolved]
  - Exposed bone in jaw [Recovering/Resolving]
  - Impaired healing [Recovering/Resolving]
  - Oral mucosal erythema [Recovered/Resolved]
